FAERS Safety Report 21875022 (Version 4)
Quarter: 2024Q1

REPORT INFORMATION
  Report Type: Spontaneous
  Country: FR (occurrence: None)
  Receive Date: 20230117
  Receipt Date: 20240218
  Transmission Date: 20240410
  Serious: Yes (Hospitalization, Other)
  Sender: FDA-Public Use
  Company Number: 2023A004152

PATIENT
  Sex: Male
  Weight: 6 kg

DRUGS (1)
  1. ESOMEPRAZOLE [Suspect]
     Active Substance: ESOMEPRAZOLE
     Indication: Gastrooesophageal reflux disease
     Route: 048
     Dates: start: 202205

REACTIONS (5)
  - Seizure [Unknown]
  - Pyrexia [Not Recovered/Not Resolved]
  - Respiratory tract infection [Unknown]
  - Malaise [Unknown]
  - Weight gain poor [Not Recovered/Not Resolved]
